FAERS Safety Report 11777336 (Version 1)
Quarter: 2015Q4

REPORT INFORMATION
  Report Type: Spontaneous
  Country: US (occurrence: US)
  Receive Date: 20151125
  Receipt Date: 20151125
  Transmission Date: 20160304
  Serious: No
  Sender: FDA-Public Use
  Company Number: US-MALLINCKRODT-T201503183

PATIENT
  Age: 71 Year
  Sex: Female

DRUGS (7)
  1. PROZAC [Concomitant]
     Active Substance: FLUOXETINE HYDROCHLORIDE
  2. MYCELEX [Concomitant]
     Active Substance: CLOTRIMAZOLE
  3. GABLOFEN [Suspect]
     Active Substance: BACLOFEN
     Indication: MUSCLE SPASTICITY
     Dosage: 108.0 MCG/DAY
     Route: 037
     Dates: start: 20150421
  4. TIZANIDINE. [Concomitant]
     Active Substance: TIZANIDINE
  5. ATIVAN [Concomitant]
     Active Substance: LORAZEPAM
  6. LIPITOR [Concomitant]
     Active Substance: ATORVASTATIN CALCIUM
  7. EVOXAC [Concomitant]
     Active Substance: CEVIMELINE HYDROCHLORIDE

REACTIONS (2)
  - Deafness [Unknown]
  - Neoplasm [Unknown]

NARRATIVE: CASE EVENT DATE: 201505
